FAERS Safety Report 5618676-X (Version None)
Quarter: 2008Q1

REPORT INFORMATION
  Report Type: 
  Country: None (occurrence: None)
  Receive Date: 20080205
  Receipt Date: 20080205
  Transmission Date: 20080703
  Serious: No
  Sender: FDA-Public Use
  Company Number: None

PATIENT
  Age: 38 Year
  Sex: Female
  Weight: 72.5755 kg

DRUGS (2)
  1. PRILOSEC [Suspect]
     Indication: DYSPEPSIA
     Dosage: 1 CAPSULE PER DAY PO
     Route: 048
     Dates: start: 20051011, end: 20061018
  2. PRILOSEC [Suspect]
     Indication: GASTROOESOPHAGEAL REFLUX DISEASE
     Dosage: 1 CAPSULE PER DAY PO
     Route: 048
     Dates: start: 20051011, end: 20061018

REACTIONS (1)
  - BACK PAIN [None]
